FAERS Safety Report 12615151 (Version 1)
Quarter: 2016Q3

REPORT INFORMATION
  Report Type: Spontaneous
  Country: US (occurrence: US)
  Receive Date: 20160802
  Receipt Date: 20160802
  Transmission Date: 20161109
  Serious: No
  Sender: FDA-Public Use
  Company Number: US-ACTELION-A-US2016-139683

PATIENT
  Age: 72 Year
  Sex: Male

DRUGS (8)
  1. ONDASETRON [Concomitant]
     Active Substance: ONDANSETRON
  2. ALLOPURINOL. [Concomitant]
     Active Substance: ALLOPURINOL
  3. TAMSULOSIN HCL [Concomitant]
     Active Substance: TAMSULOSIN
  4. ATORVASTATIN CALCIUM. [Concomitant]
     Active Substance: ATORVASTATIN CALCIUM
  5. VALCHLOR [Suspect]
     Active Substance: MECHLORETHAMINE
     Indication: MYCOSIS FUNGOIDES
     Dosage: UNK
     Route: 061
     Dates: start: 201604
  6. LIVALO [Concomitant]
     Active Substance: PITAVASTATIN CALCIUM
  7. OMEPRAZOLE. [Concomitant]
     Active Substance: OMEPRAZOLE
  8. VALSARTAN + HIDROCLOROTIAZIDA [Concomitant]
     Active Substance: HYDROCHLOROTHIAZIDE\VALSARTAN

REACTIONS (13)
  - Hypoaesthesia [Unknown]
  - Paraesthesia [Unknown]
  - Decreased appetite [Recovering/Resolving]
  - Dysgeusia [Recovering/Resolving]
  - Malaise [Recovering/Resolving]
  - Amblyopia [Unknown]
  - Visual impairment [Not Recovered/Not Resolved]
  - Eye disorder [Unknown]
  - Muscle twitching [Unknown]
  - Nervous system disorder [Unknown]
  - Weight decreased [Not Recovered/Not Resolved]
  - Disease progression [Not Recovered/Not Resolved]
  - Facial nerve disorder [Unknown]
